FAERS Safety Report 9029809 (Version 3)
Quarter: 2013Q1

REPORT INFORMATION
  Report Type: Spontaneous
  Country: US (occurrence: US)
  Receive Date: 20130124
  Receipt Date: 20130327
  Transmission Date: 20140127
  Serious: Yes (Other)
  Sender: FDA-Public Use
  Company Number: US-JNJFOC-20130110114

PATIENT
  Sex: Female
  Weight: 49.9 kg

DRUGS (2)
  1. VISINE-A EYE ALLERGY RELIEF [Suspect]
     Route: 047
  2. VISINE-A EYE ALLERGY RELIEF [Suspect]
     Indication: DRY EYE
     Dosage: ONE DROP, A COUPLE TIMES A DAY
     Route: 047
     Dates: start: 20120915, end: 20130113

REACTIONS (7)
  - Blister [Recovering/Resolving]
  - Ocular hyperaemia [Recovering/Resolving]
  - Eye irritation [Recovering/Resolving]
  - Drug ineffective [Unknown]
  - Off label use [Unknown]
  - Therapeutic response unexpected [Unknown]
  - Dry eye [Recovering/Resolving]
